FAERS Safety Report 7305904-8 (Version None)
Quarter: 2011Q1

REPORT INFORMATION
  Report Type: 
  Country: None (occurrence: None)
  Receive Date: 20110209
  Receipt Date: 20110201
  Transmission Date: 20110831
  Serious: Yes (Hospitalization)
  Sender: FDA-Public Use
  Company Number: 2009-196587-NL

PATIENT
  Age: 36 Year
  Sex: Female
  Weight: 83.0083 kg

DRUGS (2)
  1. NUVARING [Suspect]
     Indication: CONTRACEPTION
     Dosage: 1 DF
     Dates: start: 20060901, end: 20070601
  2. ALBUTEROL [Concomitant]

REACTIONS (27)
  - KIDNEY ENLARGEMENT [None]
  - HAEMORRHAGE [None]
  - MUSCLE SPASMS [None]
  - RETAINED PRODUCTS OF CONCEPTION [None]
  - HYPOKALAEMIA [None]
  - MYALGIA [None]
  - PREGNANCY [None]
  - BREAST FIBROSIS [None]
  - DEHYDRATION [None]
  - ABDOMINAL HERNIA [None]
  - ASTHENIA [None]
  - NAUSEA [None]
  - TREATMENT FAILURE [None]
  - GASTROENTERITIS [None]
  - CAESAREAN SECTION [None]
  - IRON DEFICIENCY ANAEMIA [None]
  - MAMMOGRAM ABNORMAL [None]
  - RENAL VEIN THROMBOSIS [None]
  - FLANK PAIN [None]
  - VIRAL INFECTION [None]
  - PREMATURE LABOUR [None]
  - WEIGHT DECREASED [None]
  - DIZZINESS [None]
  - MUSCULOSKELETAL PAIN [None]
  - ABORTION INDUCED [None]
  - THIRST [None]
  - RENAL VEIN OCCLUSION [None]
